FAERS Safety Report 17281023 (Version 2)
Quarter: 2020Q1

REPORT INFORMATION
  Report Type: Report from Study
  Country: BR (occurrence: BR)
  Receive Date: 20200117
  Receipt Date: 20200322
  Transmission Date: 20200409
  Serious: Yes (Other)
  Sender: FDA-Public Use
  Company Number: BR-BIOGEN-2020BI00826752

PATIENT
  Age: 70 Year
  Sex: Male

DRUGS (4)
  1. AVONEX PEN [Suspect]
     Active Substance: INTERFERON BETA-1A
  2. AVONEX PEN [Suspect]
     Active Substance: INTERFERON BETA-1A
     Indication: MULTIPLE SCLEROSIS
     Route: 030
     Dates: start: 200801
  3. AVONEX PEN [Suspect]
     Active Substance: INTERFERON BETA-1A
  4. AVONEX PEN [Suspect]
     Active Substance: INTERFERON BETA-1A

REACTIONS (4)
  - Dementia Alzheimer^s type [Not Recovered/Not Resolved]
  - Prostate cancer [Not Recovered/Not Resolved]
  - Blood glucose increased [Recovered/Resolved]
  - Blood cholesterol abnormal [Not Recovered/Not Resolved]

NARRATIVE: CASE EVENT DATE: 201910
